FAERS Safety Report 4735972-9 (Version None)
Quarter: 2005Q3

REPORT INFORMATION
  Report Type: 
  Country: None (occurrence: None)
  Receive Date: 20050805
  Receipt Date: 20050719
  Transmission Date: 20060218
  Serious: Yes (Disabling)
  Sender: FDA-Public Use
  Company Number: GB-MERCK-0507GBR00146

PATIENT
  Age: 37 Year
  Sex: Male
  Weight: 76 kg

DRUGS (7)
  1. SINGULAIR [Suspect]
     Indication: ASTHMA
     Route: 048
     Dates: start: 20050323, end: 20050401
  2. SINGULAIR [Suspect]
     Route: 048
     Dates: start: 20050407, end: 20050412
  3. SINGULAIR [Suspect]
     Route: 048
     Dates: start: 20050101, end: 20050101
  4. ALBUTEROL SULFATE AND IPRATROPIUM BROMIDE [Concomitant]
     Route: 055
     Dates: start: 20050407
  5. FLUTICASONE PROPIONATE AND SALMETEROL XINAFOATE [Concomitant]
     Indication: ASTHMA
     Route: 055
     Dates: start: 20041001
  6. FLOXACILLIN [Concomitant]
     Route: 065
  7. ERYTHROMYCIN [Concomitant]
     Indication: LOWER RESPIRATORY TRACT INFECTION
     Route: 065

REACTIONS (4)
  - PAIN IN EXTREMITY [None]
  - PARAESTHESIA [None]
  - PRESCRIBED OVERDOSE [None]
  - RESTLESSNESS [None]
